FAERS Safety Report 4618443-X (Version None)
Quarter: 2005Q1

REPORT INFORMATION
  Report Type: 
  Country: None (occurrence: None)
  Receive Date: 20050324
  Receipt Date: 20050315
  Transmission Date: 20050727
  Serious: Yes (Hospitalization)
  Sender: FDA-Public Use
  Company Number: 200510029BSV

PATIENT
  Sex: Female

DRUGS (4)
  1. ADALAT [Suspect]
     Indication: PRE-ECLAMPSIA
     Dosage: 10 MG, TOTAL DAILY; 10 MG, BID
     Dates: start: 20040304, end: 20040306
  2. ADALAT [Suspect]
     Indication: PRE-ECLAMPSIA
     Dosage: 10 MG, TOTAL DAILY; 10 MG, BID
     Dates: start: 20040307
  3. PINDOLOL [Suspect]
     Indication: PRE-ECLAMPSIA
     Dosage: 5 MG, BID, ORAL;  5 MG, BID, ORAL
     Route: 048
     Dates: start: 20040304, end: 20040306
  4. PINDOLOL [Suspect]
     Indication: PRE-ECLAMPSIA
     Dosage: 5 MG, BID, ORAL;  5 MG, BID, ORAL
     Route: 048
     Dates: start: 20040307

REACTIONS (11)
  - DRUG EXPOSURE DURING PREGNANCY [None]
  - HYPOGLYCAEMIA NEONATAL [None]
  - NEONATAL DISORDER [None]
  - NEONATAL HYPOXIA [None]
  - NEONATAL PNEUMONIA [None]
  - NEONATAL RESPIRATORY FAILURE [None]
  - OXYGEN SATURATION ABNORMAL [None]
  - PNEUMOTHORAX [None]
  - PULMONARY HYPERTENSION [None]
  - RESPIRATORY DISORDER NEONATAL [None]
  - SEPSIS NEONATAL [None]
